APPROVED DRUG PRODUCT: ADDERALL XR 5
Active Ingredient: AMPHETAMINE ASPARTATE; AMPHETAMINE SULFATE; DEXTROAMPHETAMINE SACCHARATE; DEXTROAMPHETAMINE SULFATE
Strength: 1.25MG;1.25MG;1.25MG;1.25MG
Dosage Form/Route: CAPSULE, EXTENDED RELEASE;ORAL
Application: N021303 | Product #005 | TE Code: AB1
Applicant: TAKEDA PHARMACEUTICALS USA INC
Approved: May 22, 2002 | RLD: Yes | RS: No | Type: RX